FAERS Safety Report 5335488-5 (Version None)
Quarter: 2007Q2

REPORT INFORMATION
  Report Type: 
  Country: None (occurrence: None)
  Receive Date: 20070521
  Receipt Date: 20070508
  Transmission Date: 20071010
  Serious: Yes (Other)
  Sender: FDA-Public Use
  Company Number: S07-USA-01947-01

PATIENT
  Age: 82 Year
  Sex: Female

DRUGS (3)
  1. NAMENDA [Suspect]
     Indication: DEMENTIA ALZHEIMER'S TYPE
     Dosage: 10 MG QD PO
     Route: 048
     Dates: end: 20070508
  2. DEXTROMETHORPHAN [Suspect]
     Indication: COUGH
     Dosage: 2 Q4HR
     Dates: start: 20070401, end: 20070425
  3. BETOPTIC [Concomitant]

REACTIONS (4)
  - COUGH [None]
  - DRUG INTERACTION [None]
  - GAIT DISTURBANCE [None]
  - HYPOGLYCAEMIA [None]
